FAERS Safety Report 5630337-X (Version None)
Quarter: 2008Q1

REPORT INFORMATION
  Report Type: 
  Country: None (occurrence: None)
  Receive Date: 20080219
  Receipt Date: 20080218
  Transmission Date: 20080703
  Serious: Yes (Death, Other)
  Sender: FDA-Public Use
  Company Number: PHNU2007DE03068

PATIENT
  Age: 45 Year
  Sex: Male
  Weight: 84 kg

DRUGS (4)
  1. LEPONEX [Suspect]
     Indication: PARANOIA
     Dosage: UP TO 550 MG/DAY
     Route: 048
     Dates: start: 19930101
  2. PALIPERIDONE [Concomitant]
     Indication: PARANOIA
     Dosage: 6 MG/DAY
     Dates: start: 20070803
  3. SPASMEX [Concomitant]
     Indication: URINARY RETENTION
     Dosage: 1.5 MG/DAY
     Dates: start: 20060101
  4. ALPRAZOLAM [Concomitant]
     Indication: RESTLESSNESS
     Dosage: 2 MG/DAY
     Dates: start: 20040101

REACTIONS (2)
  - ARRHYTHMIA [None]
  - CATATONIA [None]
